FAERS Safety Report 9238471 (Version 1)
Quarter: 2013Q2

REPORT INFORMATION
  Report Type: Spontaneous
  Country: GB (occurrence: GB)
  Receive Date: 20130418
  Receipt Date: 20130418
  Transmission Date: 20140414
  Serious: Yes (Life-Threatening, Hospitalization)
  Sender: FDA-Public Use
  Company Number: PHHY2013GB036842

PATIENT
  Age: 22 Year
  Sex: Female

DRUGS (1)
  1. CITALOPRAM [Suspect]
     Indication: ANXIETY
     Dosage: 20 MG
     Route: 048
     Dates: start: 20130318, end: 20130318

REACTIONS (5)
  - Sensation of heaviness [Recovered/Resolved]
  - Dysarthria [Recovered/Resolved]
  - Sensory loss [Recovered/Resolved]
  - Dizziness [Recovered/Resolved]
  - Visual impairment [Recovered/Resolved]
